FAERS Safety Report 12124411 (Version 2)
Quarter: 2018Q2

REPORT INFORMATION
  Report Type: Spontaneous
  Country: JP (occurrence: JP)
  Receive Date: 20160229
  Receipt Date: 20180625
  Transmission Date: 20180711
  Serious: Yes (Hospitalization)
  Sender: FDA-Public Use
  Company Number: JP-ROCHE-1714698

PATIENT
  Age: 49 Year
  Sex: Female

DRUGS (6)
  1. MEROPENEM. [Concomitant]
     Active Substance: MEROPENEM
     Indication: DISSEMINATED INTRAVASCULAR COAGULATION
  2. MEROPENEM. [Concomitant]
     Active Substance: MEROPENEM
     Indication: PERITONITIS
  3. ACTEMRA [Suspect]
     Active Substance: TOCILIZUMAB
     Indication: LIVER INJURY
  4. ACTEMRA [Suspect]
     Active Substance: TOCILIZUMAB
     Indication: CASTLEMAN^S DISEASE
     Route: 042
  5. METHYLPREDNISOLONE. [Concomitant]
     Active Substance: METHYLPREDNISOLONE
     Route: 042
  6. ACTEMRA [Suspect]
     Active Substance: TOCILIZUMAB
     Indication: SYSTEMIC INFLAMMATORY RESPONSE SYNDROME

REACTIONS (5)
  - Off label use [Unknown]
  - Hyperbilirubinaemia [Unknown]
  - Intentional product use issue [Unknown]
  - Rectal ulcer haemorrhage [Unknown]
  - Staphylococcal sepsis [Unknown]
